FAERS Safety Report 20875282 (Version 11)
Quarter: 2024Q1

REPORT INFORMATION
  Report Type: Other
  Country: CA (occurrence: None)
  Receive Date: 20220526
  Receipt Date: 20240119
  Transmission Date: 20240410
  Serious: No
  Sender: FDA-Public Use
  Company Number: CA-ROCHE-3004958

PATIENT
  Age: 44 Year
  Sex: Female

DRUGS (4)
  1. OCREVUS [Suspect]
     Active Substance: OCRELIZUMAB
     Indication: Relapsing-remitting multiple sclerosis
     Dosage: THEN 600 MG 1 IN EVERY 6 MONTHS.
     Route: 042
     Dates: start: 20190628
  2. OCREVUS [Suspect]
     Active Substance: OCRELIZUMAB
     Route: 042
     Dates: start: 20190628
  3. RABEPRAZOLE [Concomitant]
     Active Substance: RABEPRAZOLE
  4. TYLENOL [Concomitant]
     Active Substance: ACETAMINOPHEN

REACTIONS (12)
  - Palpitations [Unknown]
  - Feeling abnormal [Unknown]
  - Hyperhidrosis [Unknown]
  - Feeling hot [Unknown]
  - SARS-CoV-2 test positive [Recovered/Resolved]
  - Bacterial infection [Recovered/Resolved]
  - Cough [Recovered/Resolved]
  - Sinusitis [Not Recovered/Not Resolved]
  - Laryngitis [Recovered/Resolved]
  - Eye pain [Not Recovered/Not Resolved]
  - Pharyngeal swelling [Not Recovered/Not Resolved]
  - Discomfort [Unknown]

NARRATIVE: CASE EVENT DATE: 20220408
